FAERS Safety Report 9886357 (Version 2)
Quarter: 2014Q1

REPORT INFORMATION
  Report Type: Spontaneous
  Country: US (occurrence: US)
  Receive Date: 20140210
  Receipt Date: 20140210
  Transmission Date: 20141002
  Serious: Yes (Other)
  Sender: FDA-Public Use
  Company Number: US-ABBVIE-13P-163-1103233-00

PATIENT
  Sex: Female

DRUGS (3)
  1. HUMIRA [Suspect]
     Indication: PSORIASIS
     Dates: start: 2008
  2. HUMIRA [Suspect]
     Dates: start: 20091211, end: 201002
  3. HUMIRA [Suspect]
     Dates: end: 20130620

REACTIONS (2)
  - Vaginal haemorrhage [Recovered/Resolved]
  - Uterine leiomyoma [Not Recovered/Not Resolved]
